FAERS Safety Report 8396918-8 (Version None)
Quarter: 2012Q2

REPORT INFORMATION
  Report Type: 
  Country: None (occurrence: None)
  Receive Date: 20120530
  Receipt Date: 20120521
  Transmission Date: 20120825
  Serious: Yes (Hospitalization, Other)
  Sender: FDA-Public Use
  Company Number: US-ABBOTT-12P-163-0914624-00

PATIENT
  Sex: Male
  Weight: 108.96 kg

DRUGS (20)
  1. DAPRO [Concomitant]
     Indication: RHEUMATOID ARTHRITIS
  2. LISINOPRIL AND HYDROCHLOROTHIAZIDE [Concomitant]
     Indication: PRODUCT USED FOR UNKNOWN INDICATION
     Dosage: 20/25 MG DAILY
  3. IMDUR [Concomitant]
     Indication: PRODUCT USED FOR UNKNOWN INDICATION
     Dosage: 15 MG DAILY
  4. POTASSIUM CHLORIDE [Concomitant]
     Indication: PRODUCT USED FOR UNKNOWN INDICATION
  5. PEPCID [Concomitant]
     Indication: PRODUCT USED FOR UNKNOWN INDICATION
  6. CARVEDILOL [Concomitant]
     Indication: HYPERTENSION
  7. SIMVASTATIN [Concomitant]
     Indication: BLOOD TRIGLYCERIDES INCREASED
     Dosage: 10 MG ONCE NIGHTLY
     Route: 048
  8. NITROGLYCERIN [Concomitant]
     Indication: PRODUCT USED FOR UNKNOWN INDICATION
  9. FISH OIL [Concomitant]
     Indication: PRODUCT USED FOR UNKNOWN INDICATION
  10. COREG [Concomitant]
     Indication: PRODUCT USED FOR UNKNOWN INDICATION
     Route: 048
  11. LISINOPRIL [Concomitant]
     Indication: HYPERTENSION
  12. HUMIRA [Suspect]
  13. ASPIRIN [Concomitant]
     Indication: PROPHYLAXIS
     Dosage: 81 MG DAILY
  14. METHOTREXATE [Concomitant]
     Indication: PRODUCT USED FOR UNKNOWN INDICATION
     Dosage: 0.7 ML WEEKLY
     Route: 030
  15. HOME MEDICATIONS INCLUDE ASPIRIN [Concomitant]
     Indication: PRODUCT USED FOR UNKNOWN INDICATION
     Dosage: 81 MG DAILY
  16. BRILINTA [Concomitant]
     Indication: PRODUCT USED FOR UNKNOWN INDICATION
  17. HUMIRA [Suspect]
     Indication: RHEUMATOID ARTHRITIS
     Route: 058
     Dates: start: 20090101
  18. FENOFIBRATE [Concomitant]
     Indication: BLOOD TRIGLYCERIDES INCREASED
     Dosage: 160NG DAILY
  19. HEPARIN [Concomitant]
     Indication: PRODUCT USED FOR UNKNOWN INDICATION
     Route: 042
  20. LASIX [Concomitant]
     Indication: PRODUCT USED FOR UNKNOWN INDICATION
     Dosage: 40 MG DAILY

REACTIONS (13)
  - CHEST DISCOMFORT [None]
  - FEELING ABNORMAL [None]
  - TROPONIN INCREASED [None]
  - HYPERTENSION [None]
  - VASCULAR GRAFT OCCLUSION [None]
  - VASCULAR GRAFT COMPLICATION [None]
  - CHEST PAIN [None]
  - ANGINA UNSTABLE [None]
  - DYSPNOEA [None]
  - CORONARY ARTERY OCCLUSION [None]
  - DYSPNOEA EXERTIONAL [None]
  - CORONARY ARTERY DISEASE [None]
  - ACUTE MYOCARDIAL INFARCTION [None]
